FAERS Safety Report 22107193 (Version 2)
Quarter: 2023Q4

REPORT INFORMATION
  Report Type: Spontaneous
  Country: FR (occurrence: FR)
  Receive Date: 20230317
  Receipt Date: 20231230
  Transmission Date: 20240110
  Serious: Yes (Life-Threatening, Other)
  Sender: FDA-Public Use
  Company Number: FR-AFSSAPS-PO2023000183

PATIENT
  Age: 81 Year
  Sex: Male
  Weight: 80 kg

DRUGS (3)
  1. LOPERAMIDE [Suspect]
     Active Substance: LOPERAMIDE
     Indication: Gastroenteritis
     Dosage: 2 MILLIGRAM
     Route: 048
     Dates: start: 20230130, end: 20230202
  2. PHLOROGLUCINOL [Suspect]
     Active Substance: PHLOROGLUCINOL
     Indication: Gastroenteritis
     Dosage: 6 DOSAGE FORM
     Route: 048
     Dates: start: 20230130, end: 20230202
  3. RACECADOTRIL [Suspect]
     Active Substance: RACECADOTRIL
     Indication: Gastroenteritis
     Dosage: 300 MILLIGRAM
     Route: 048
     Dates: start: 20230130, end: 20230202

REACTIONS (1)
  - Anaphylactic shock [Recovered/Resolved]

NARRATIVE: CASE EVENT DATE: 20230202
